FAERS Safety Report 7691381-4 (Version None)
Quarter: 2011Q3

REPORT INFORMATION
  Report Type: 
  Country: None (occurrence: None)
  Receive Date: 20110818
  Receipt Date: 20110809
  Transmission Date: 20111222
  Serious: Yes (Other)
  Sender: FDA-Public Use
  Company Number: PHHY2011AR72705

PATIENT
  Sex: Male

DRUGS (1)
  1. ZOMETA [Suspect]
     Dosage: 40 MG, QMO
     Route: 042

REACTIONS (4)
  - PAIN IN JAW [None]
  - OSTEONECROSIS OF JAW [None]
  - BONE SWELLING [None]
  - IMPAIRED HEALING [None]
